FAERS Safety Report 7262191-7 (Version None)
Quarter: 2011Q1

REPORT INFORMATION
  Report Type: 
  Country: None (occurrence: None)
  Receive Date: 20110130
  Receipt Date: 20101112
  Transmission Date: 20110831
  Serious: Yes (Hospitalization)
  Sender: FDA-Public Use
  Company Number: US-ABBOTT-10P-163-0685498-00

PATIENT
  Sex: Male
  Weight: 88.53 kg

DRUGS (4)
  1. HUMIRA [Suspect]
     Indication: CROHN'S DISEASE
     Route: 058
     Dates: start: 20091101, end: 20100901
  2. METHOTREXATE [Concomitant]
     Indication: CROHN'S DISEASE
  3. IMURAN [Concomitant]
     Indication: CROHN'S DISEASE
  4. MERCAPTOPURINE [Suspect]
     Indication: CROHN'S DISEASE

REACTIONS (5)
  - RECTAL ABSCESS [None]
  - NAUSEA [None]
  - ABDOMINAL PAIN [None]
  - DIARRHOEA [None]
  - DRUG INEFFECTIVE [None]
